FAERS Safety Report 25892379 (Version 2)
Quarter: 2025Q4

REPORT INFORMATION
  Report Type: Spontaneous
  Country: JP (occurrence: JP)
  Receive Date: 20251007
  Receipt Date: 20251020
  Transmission Date: 20260117
  Serious: No
  Sender: AMGEN
  Company Number: JP-BEH-2025220584

PATIENT
  Age: 75 Year
  Sex: Female

DRUGS (1)
  1. TAVNEOS [Suspect]
     Active Substance: AVACOPAN
     Indication: Product used for unknown indication
     Dosage: 60 MG, QD
     Route: 048

REACTIONS (3)
  - Accidental overdose [Unknown]
  - Incorrect dosage administered [Unknown]
  - Infusion [Unknown]
